FAERS Safety Report 5355808-5 (Version None)
Quarter: 2007Q2

REPORT INFORMATION
  Report Type: 
  Country: None (occurrence: None)
  Receive Date: 20070611
  Receipt Date: 20070611
  Transmission Date: 20071010
  Serious: Yes (Disabling)
  Sender: FDA-Public Use
  Company Number: None

PATIENT
  Sex: Female
  Weight: 51.2565 kg

DRUGS (1)
  1. MIRENA [Suspect]
     Indication: CONTRACEPTION
     Dosage: INTRA-UTERI
     Route: 015
     Dates: start: 20060801

REACTIONS (6)
  - BACK PAIN [None]
  - DEPRESSION [None]
  - FATIGUE [None]
  - METRORRHAGIA [None]
  - MOOD SWINGS [None]
  - PAIN IN EXTREMITY [None]
